FAERS Safety Report 10049144 (Version 2)
Quarter: 2014Q2

REPORT INFORMATION
  Report Type: Spontaneous
  Country: US (occurrence: US)
  Receive Date: 20140401
  Receipt Date: 20140401
  Transmission Date: 20141212
  Serious: Yes (Death)
  Sender: FDA-Public Use
  Company Number: US-ROCHE-1310964

PATIENT
  Age: 51 Year
  Sex: Female

DRUGS (15)
  1. XELODA [Suspect]
     Indication: HEPATIC CANCER
     Dosage: 2 TABS (1000MG), TWICE A DAY
     Route: 048
     Dates: start: 20131104
  2. XELODA [Suspect]
     Indication: LUNG NEOPLASM MALIGNANT
  3. TYKERB [Concomitant]
     Dosage: 5 TABLETS BY MOUTH ONCE DAILY
     Route: 065
  4. PLAVIX [Concomitant]
  5. ASPIRIN [Concomitant]
  6. SPIRONOLACTONE [Concomitant]
  7. PANTOPRAZOLE [Concomitant]
  8. CALCITRIOL [Concomitant]
  9. LEVEMIR [Concomitant]
  10. ALPHAGAN [Concomitant]
  11. AZOPT [Concomitant]
  12. LORTAB [Concomitant]
  13. SIMVASTATIN [Concomitant]
  14. BUMETANIDE [Concomitant]
  15. LUMIGAN [Concomitant]

REACTIONS (12)
  - Death [Fatal]
  - Diarrhoea [Not Recovered/Not Resolved]
  - Epistaxis [Unknown]
  - Stomatitis [Unknown]
  - Oral mucosal blistering [Unknown]
  - Vomiting [Not Recovered/Not Resolved]
  - Nausea [Unknown]
  - Blister [Unknown]
  - Nasal ulcer [Unknown]
  - Onychomadesis [Unknown]
  - Eye discharge [Unknown]
  - Diarrhoea [Unknown]
